FAERS Safety Report 6114028-7 (Version None)
Quarter: 2009Q1

REPORT INFORMATION
  Report Type: 
  Country: None (occurrence: None)
  Receive Date: 20090312
  Receipt Date: 20081126
  Transmission Date: 20090719
  Serious: No
  Sender: FDA-Public Use
  Company Number: US-ABBOTT-08P-163-0490299-00

PATIENT
  Sex: Female

DRUGS (2)
  1. LUPRON DEPOT [Suspect]
     Indication: UTERINE LEIOMYOMA
     Dates: start: 20081114
  2. ADBACK THERAPY [Concomitant]
     Indication: UTERINE LEIOMYOMA

REACTIONS (3)
  - ABDOMINAL DISTENSION [None]
  - IRRITABILITY [None]
  - MUSCLE SPASMS [None]
